FAERS Safety Report 22361310 (Version 1)
Quarter: 2023Q2

REPORT INFORMATION
  Report Type: Spontaneous
  Country: US (occurrence: US)
  Receive Date: 20230524
  Receipt Date: 20230524
  Transmission Date: 20230722
  Serious: No
  Sender: FDA-Public Use
  Company Number: US-PFIZER INC-US-GBT-015491

PATIENT
  Age: 24 Year
  Sex: Male

DRUGS (3)
  1. OXBRYTA [Suspect]
     Active Substance: VOXELOTOR
     Indication: Sickle cell disease
     Dosage: 1500 MG, 1X/DAY
     Route: 048
     Dates: start: 20220704
  2. OXBRYTA [Suspect]
     Active Substance: VOXELOTOR
     Dosage: 1000 MG, 1X/DAY (2 TABLETS OF 500 MG)
     Route: 048
     Dates: start: 2023
  3. HYDROXYUREA [Concomitant]
     Active Substance: HYDROXYUREA
     Dosage: UNK

REACTIONS (3)
  - Rash [Not Recovered/Not Resolved]
  - Product dose omission issue [Unknown]
  - Off label use [Unknown]

NARRATIVE: CASE EVENT DATE: 20220701
